FAERS Safety Report 4478722-6 (Version None)
Quarter: 2004Q4

REPORT INFORMATION
  Report Type: 
  Country: None (occurrence: None)
  Receive Date: 20041019
  Receipt Date: 20030509
  Transmission Date: 20050328
  Serious: Yes (Death, Life-Threatening, Other)
  Sender: FDA-Public Use
  Company Number: PHBS2003JP04817

PATIENT
  Age: 31 Year
  Sex: Male

DRUGS (3)
  1. GLEEVEC [Suspect]
     Indication: CHRONIC MYELOID LEUKAEMIA
     Dosage: 400 MG/DAY
     Route: 048
     Dates: start: 20020518, end: 20020819
  2. GLEEVEC [Suspect]
     Dosage: 400 MG/D
     Route: 048
     Dates: start: 20020917, end: 20021105
  3. GLEEVEC [Suspect]
     Dosage: 400 MGD
     Route: 048
     Dates: start: 20030127, end: 20030316

REACTIONS (10)
  - GASTROINTESTINAL HAEMORRHAGE [None]
  - GASTROINTESTINAL PERFORATION [None]
  - MELAENA [None]
  - OESOPHAGEAL PERFORATION [None]
  - PHARYNGOLARYNGEAL PAIN [None]
  - PHARYNX DISCOMFORT [None]
  - SMALL INTESTINAL HAEMORRHAGE [None]
  - SMALL INTESTINAL PERFORATION [None]
  - STOMATITIS [None]
  - THROMBOCYTOPENIA [None]
